FAERS Safety Report 6600448-0 (Version None)
Quarter: 2010Q1

REPORT INFORMATION
  Report Type: 
  Country: None (occurrence: None)
  Receive Date: 20100223
  Receipt Date: 20100223
  Transmission Date: 20100710
  Serious: Yes (Other)
  Sender: FDA-Public Use
  Company Number: None

PATIENT
  Sex: Male
  Weight: 106.5953 kg

DRUGS (1)
  1. OFLOXACIN [Suspect]
     Indication: CONJUNCTIVITIS
     Dosage: 2 DROPS IN EACH EYE 4 TIMES A DAY OPTHALMIC
     Route: 047
     Dates: start: 20100127, end: 20100127

REACTIONS (4)
  - EYE SWELLING [None]
  - HYPERSENSITIVITY [None]
  - PAIN [None]
  - VISUAL IMPAIRMENT [None]
